FAERS Safety Report 10183214 (Version 2)
Quarter: 2014Q2

REPORT INFORMATION
  Report Type: Spontaneous
  Country: IE (occurrence: IE)
  Receive Date: 20140520
  Receipt Date: 20140626
  Transmission Date: 20141212
  Serious: Yes (Other)
  Sender: FDA-Public Use
  Company Number: IE-BAYER-2014-068346

PATIENT
  Age: 24 Year
  Sex: Male

DRUGS (11)
  1. CIPROXIN [Suspect]
     Indication: INFECTIVE EXACERBATION OF CHRONIC OBSTRUCTIVE AIRWAYS DISEASE
     Dosage: 400 MG, TID
     Route: 042
     Dates: start: 20140318, end: 20140324
  2. CIPROXIN [Suspect]
     Indication: INFECTIVE EXACERBATION OF CHRONIC OBSTRUCTIVE AIRWAYS DISEASE
     Dosage: UNK
     Route: 042
     Dates: start: 20140324, end: 20140411
  3. PULMOZYME [Concomitant]
     Indication: CYSTIC FIBROSIS
     Dosage: 2.5 MG DAILY DOSE
     Route: 045
     Dates: start: 20140318
  4. TOBRAMYCIN [Concomitant]
     Indication: CYSTIC FIBROSIS
     Dosage: 50 MG, QD
     Route: 042
     Dates: start: 20140319
  5. CREON [PANCREATIN] [Concomitant]
     Indication: CYSTIC FIBROSIS
     Dosage: 25000 UNITS
     Route: 048
  6. AZITHROMYCIN [Concomitant]
     Indication: CYSTIC FIBROSIS
     Dosage: 500 MG EVERY ALTERNATE DAY
  7. OMEPRAZOLE [Concomitant]
     Indication: CYSTIC FIBROSIS
     Dosage: 40 MG, QD
     Route: 048
  8. FOSAVANCE [Concomitant]
     Indication: CYSTIC FIBROSIS
     Dosage: 70 MG, OW
     Route: 048
  9. MIRTAZAPINE [Concomitant]
     Indication: CYSTIC FIBROSIS
     Dosage: 45 MG, QD
     Route: 048
  10. TRAZODONE [Concomitant]
     Indication: CYSTIC FIBROSIS
     Dosage: 50 MG, QD
     Route: 048
  11. CALCICHEW D3 [Concomitant]
     Dosage: 1 DF, BID
     Route: 048

REACTIONS (3)
  - Paraesthesia [Recovered/Resolved]
  - Blood calcium decreased [Recovered/Resolved]
  - Blood magnesium decreased [Recovered/Resolved]
